FAERS Safety Report 6306209-4 (Version None)
Quarter: 2009Q3

REPORT INFORMATION
  Report Type: 
  Country: None (occurrence: None)
  Receive Date: 20090812
  Receipt Date: 20090701
  Transmission Date: 20100115
  Serious: No
  Sender: FDA-Public Use
  Company Number: US-BAYER-200926968NA

PATIENT
  Age: 41 Year
  Sex: Male
  Weight: 84 kg

DRUGS (1)
  1. MAGNEVIST [Suspect]
     Indication: NUCLEAR MAGNETIC RESONANCE IMAGING
     Dosage: TOTAL DAILY DOSE: 18 ML  UNIT DOSE: 20 ML
     Route: 042
     Dates: start: 20090701, end: 20090701

REACTIONS (1)
  - PRURITUS [None]
